FAERS Safety Report 14033548 (Version 2)
Quarter: 2017Q4

REPORT INFORMATION
  Report Type: Spontaneous
  Country: JP (occurrence: JP)
  Receive Date: 20171003
  Receipt Date: 20171122
  Transmission Date: 20180321
  Serious: Yes (Death, Other)
  Sender: FDA-Public Use
  Company Number: JP-ACTELION-A-CH2017-160387

PATIENT
  Age: 29 Year
  Sex: Male
  Weight: 54 kg

DRUGS (12)
  1. EPOPROSTENOL ACT [Suspect]
     Active Substance: EPOPROSTENOL
     Dosage: 0.02 ?G/KG, PER MIN
     Route: 042
     Dates: start: 20170822
  2. EPOPROSTENOL ACT [Suspect]
     Active Substance: EPOPROSTENOL
     Dosage: 0.04 ?G/KG, PER MIN
     Route: 042
     Dates: start: 2017
  3. EPOPROSTENOL ACT [Suspect]
     Active Substance: EPOPROSTENOL
     Indication: PORTOPULMONARY HYPERTENSION
     Dosage: 0.012 ?G/KG, PER MIN
     Route: 042
     Dates: start: 2017
  4. REMODULIN [Suspect]
     Active Substance: TREPROSTINIL
     Dosage: 0.054 ?G/KG, PER MIN
     Route: 042
     Dates: start: 20170823
  5. BERAPROST [Concomitant]
     Active Substance: BERAPROST
     Dosage: UNK
     Route: 048
     Dates: start: 2012
  6. NITRIC OXIDE. [Concomitant]
     Active Substance: NITRIC OXIDE
  7. REMODULIN [Suspect]
     Active Substance: TREPROSTINIL
     Indication: PORTOPULMONARY HYPERTENSION
     Dosage: 0.03 ?G/KG, PER MIN
     Route: 042
     Dates: start: 20170822
  8. TADALAFIL [Concomitant]
     Active Substance: TADALAFIL
     Dosage: 40 MG, UNK
     Route: 048
     Dates: start: 2012
  9. EPOPROSTENOL ACT [Suspect]
     Active Substance: EPOPROSTENOL
     Dosage: UNK
     Route: 042
     Dates: start: 2005
  10. EPOPROSTENOL ACT [Suspect]
     Active Substance: EPOPROSTENOL
     Dosage: 20 NG, PER MIN
     Route: 042
     Dates: start: 20170724, end: 20170822
  11. REMODULIN [Suspect]
     Active Substance: TREPROSTINIL
     Dosage: 0.044 ?G/KG, PER MIN
     Route: 042
     Dates: start: 20170824, end: 20170824
  12. AMBRISENTAN [Concomitant]
     Active Substance: AMBRISENTAN
     Dosage: 10 MG, UNK
     Route: 048
     Dates: start: 2012

REACTIONS (13)
  - Right ventricular failure [Fatal]
  - Malaise [Fatal]
  - Nausea [Fatal]
  - Abdominal distension [Fatal]
  - Ascites [Fatal]
  - Diarrhoea [Unknown]
  - Weight increased [Fatal]
  - Drug titration error [Unknown]
  - Acute kidney injury [Not Recovered/Not Resolved]
  - Headache [Fatal]
  - Feeling hot [Not Recovered/Not Resolved]
  - Thrombocytopenia [Unknown]
  - Hypotension [Fatal]

NARRATIVE: CASE EVENT DATE: 2017
